FAERS Safety Report 8556370-6 (Version None)
Quarter: 2012Q2

REPORT INFORMATION
  Report Type: 
  Country: None (occurrence: None)
  Receive Date: 20120418
  Receipt Date: 20090626
  Transmission Date: 20120825
  Serious: Yes (Other)
  Sender: FDA-Public Use
  Company Number: PHEH2009US06853

PATIENT
  Sex: Female

DRUGS (1)
  1. ELIDEL [Suspect]
     Dates: start: 20020607, end: 20050101

REACTIONS (1)
  - LYMPHOMA [None]
